FAERS Safety Report 5072992-1 (Version None)
Quarter: 2006Q3

REPORT INFORMATION
  Report Type: 
  Country: None (occurrence: None)
  Receive Date: 20060802
  Receipt Date: 20060720
  Transmission Date: 20061208
  Serious: Yes (Hospitalization)
  Sender: FDA-Public Use
  Company Number: 2006089308

PATIENT
  Age: 52 Year
  Sex: Male
  Weight: 77 kg

DRUGS (3)
  1. SUTENT [Suspect]
     Indication: METASTATIC RENAL CELL CARCINOMA
     Dosage: 50 MG (50 MG, 1 IN 1 D), ORAL
     Route: 048
     Dates: start: 20060607
  2. OXYCODONE HCL [Concomitant]
  3. ACETAMINOPHEN [Concomitant]

REACTIONS (6)
  - COLLAPSE OF LUNG [None]
  - DIARRHOEA [None]
  - NAUSEA [None]
  - OEDEMA PERIPHERAL [None]
  - PLEURAL EFFUSION [None]
  - PNEUMONIA [None]
